FAERS Safety Report 7624204-X (Version None)
Quarter: 2011Q3

REPORT INFORMATION
  Report Type: 
  Country: None (occurrence: None)
  Receive Date: 20110720
  Receipt Date: 20110720
  Transmission Date: 20111222
  Serious: Yes (Other)
  Sender: FDA-Public Use
  Company Number: None

PATIENT
  Age: 36 Year
  Sex: Female
  Weight: 72.574 kg

DRUGS (1)
  1. LEVOTHYROXINE SODIUM [Suspect]
     Indication: HYPOTHYROIDISM
     Dosage: 125 MCG
     Route: 048
     Dates: start: 20110521, end: 20110628

REACTIONS (5)
  - BLOOD THYROID STIMULATING HORMONE INCREASED [None]
  - PRODUCT MEASURED POTENCY ISSUE [None]
  - PRODUCT FORMULATION ISSUE [None]
  - ANGIOEDEMA [None]
  - DRUG HYPERSENSITIVITY [None]
